FAERS Safety Report 15884496 (Version 2)
Quarter: 2019Q4

REPORT INFORMATION
  Report Type: Report from Study
  Country: US (occurrence: US)
  Receive Date: 20190129
  Receipt Date: 20191110
  Transmission Date: 20200122
  Serious: Yes (Other)
  Sender: FDA-Public Use
  Company Number: PHHY2019US016659

PATIENT
  Age: 25 Year
  Sex: Female

DRUGS (1)
  1. GILENYA [Suspect]
     Active Substance: FINGOLIMOD HYDROCHLORIDE
     Indication: MULTIPLE SCLEROSIS
     Dosage: UNK, QD
     Route: 048

REACTIONS (10)
  - Upper respiratory tract infection [Unknown]
  - Melanocytic naevus [Unknown]
  - Headache [Recovered/Resolved]
  - Nausea [Unknown]
  - Back pain [Recovered/Resolved]
  - Aspartate aminotransferase increased [Recovered/Resolved]
  - Solar lentigo [Unknown]
  - Alanine aminotransferase increased [Unknown]
  - Abdominal pain [Recovered/Resolved]
  - Lymphocyte count decreased [Unknown]

NARRATIVE: CASE EVENT DATE: 20171206
